FAERS Safety Report 6342108-X (Version None)
Quarter: 2009Q3

REPORT INFORMATION
  Report Type: 
  Country: None (occurrence: None)
  Receive Date: 20090903
  Receipt Date: 20090903
  Transmission Date: 20100115
  Serious: Yes (Other)
  Sender: FDA-Public Use
  Company Number: None

PATIENT
  Age: 83 Year
  Sex: Female
  Weight: 72.5 kg

DRUGS (3)
  1. TAMIFLU [Suspect]
     Indication: INFLUENZA
     Dosage: 1 CAPSULE DAILY PO
     Route: 048
     Dates: start: 20090401, end: 20090902
  2. TAMIFLU [Suspect]
     Indication: PROPHYLAXIS
     Dosage: 1 CAPSULE DAILY PO
     Route: 048
     Dates: start: 20090401, end: 20090902
  3. CYMBALTA [Suspect]
     Indication: NEUROPATHY PERIPHERAL
     Dosage: 3 CAPSULES DAILY PO
     Route: 048
     Dates: start: 20090831, end: 20090902

REACTIONS (3)
  - CONDITION AGGRAVATED [None]
  - HALLUCINATION [None]
  - NIGHTMARE [None]
